FAERS Safety Report 4518844-4 (Version None)
Quarter: 2004Q4

REPORT INFORMATION
  Report Type: 
  Country: None (occurrence: None)
  Receive Date: 20041206
  Receipt Date: 20041124
  Transmission Date: 20050328
  Serious: Yes (Death)
  Sender: FDA-Public Use
  Company Number: JP-JNJFOC-20040200932

PATIENT
  Sex: Male
  Weight: 48.5 kg

DRUGS (2)
  1. REMICADE [Suspect]
     Indication: CROHN'S DISEASE
     Dosage: FIFTH INFUSION
     Route: 041
  2. TPN [Concomitant]

REACTIONS (15)
  - ABDOMINAL ABSCESS [None]
  - AMYOTROPHY [None]
  - BULBAR PALSY [None]
  - CARDIO-RESPIRATORY ARREST [None]
  - COMA [None]
  - DEPRESSED LEVEL OF CONSCIOUSNESS [None]
  - DISSEMINATED INTRAVASCULAR COAGULATION [None]
  - DYSPHAGIA [None]
  - ENCEPHALOPATHY [None]
  - HAEMORRHAGIC CEREBRAL INFARCTION [None]
  - ILEUS [None]
  - POSTOPERATIVE INFECTION [None]
  - RESPIRATORY DISORDER [None]
  - SEPSIS [None]
  - SHOCK [None]
